FAERS Safety Report 21935955 (Version 16)
Quarter: 2025Q3

REPORT INFORMATION
  Report Type: Report from Study
  Country: BR (occurrence: BR)
  Receive Date: 20230201
  Receipt Date: 20250922
  Transmission Date: 20251020
  Serious: Yes (Hospitalization, Other)
  Sender: PFIZER
  Company Number: BR-TAKEDA-BR201906735

PATIENT
  Age: 21 Year
  Sex: Male
  Weight: 53 kg

DRUGS (26)
  1. PANTOPRAZOLE [Suspect]
     Active Substance: PANTOPRAZOLE
     Dosage: 40 MILLIGRAM, QD
     Route: 042
  2. REPLAGAL [Suspect]
     Active Substance: AGALSIDASE ALFA
     Indication: Fabry^s disease
     Route: 042
  3. REPLAGAL [Suspect]
     Active Substance: AGALSIDASE ALFA
     Route: 042
  4. REPLAGAL [Suspect]
     Active Substance: AGALSIDASE ALFA
     Route: 042
  5. REPLAGAL [Suspect]
     Active Substance: AGALSIDASE ALFA
     Route: 042
  6. REPLAGAL [Suspect]
     Active Substance: AGALSIDASE ALFA
     Route: 042
  7. REPLAGAL [Suspect]
     Active Substance: AGALSIDASE ALFA
     Route: 042
  8. REPLAGAL [Suspect]
     Active Substance: AGALSIDASE ALFA
     Route: 042
  9. REPLAGAL [Suspect]
     Active Substance: AGALSIDASE ALFA
     Route: 042
     Dates: start: 2020
  10. ENALAPRIL [Suspect]
     Active Substance: ENALAPRIL
     Indication: Hypertension
     Route: 065
  11. LOSARTAN [Concomitant]
     Active Substance: LOSARTAN
     Indication: Cardiac disorder
     Route: 065
  12. LOSARTAN [Concomitant]
     Active Substance: LOSARTAN
     Dosage: 25 MILLIGRAM, QD
     Route: 065
  13. GABAPENTIN [Concomitant]
     Active Substance: GABAPENTIN
     Indication: Renal disorder
     Dosage: 400 MILLIGRAM, BID
     Route: 065
  14. GABAPENTIN [Concomitant]
     Active Substance: GABAPENTIN
     Indication: Neuralgia
  15. ASPIRIN [Concomitant]
     Active Substance: ASPIRIN
     Indication: Blood disorder
     Dosage: 100 MILLIGRAM, QD
     Route: 065
  16. VITAMIN D NOS [Concomitant]
     Active Substance: CHOLECALCIFEROL\ERGOCALCIFEROL
     Dosage: 5000 INTERNATIONAL UNIT, MONTHLY
     Route: 065
  17. SIMVASTATIN [Concomitant]
     Active Substance: SIMVASTATIN
     Indication: Cardiac discomfort
     Dosage: 200 MILLIGRAM, QD
     Route: 065
  18. DIPYRONE [Concomitant]
     Active Substance: DIPYRONE
     Route: 065
  19. ORAL REHYDRATION SALT [Concomitant]
     Indication: Nausea
     Route: 048
  20. ORAL REHYDRATION SALT [Concomitant]
     Indication: Diarrhoea
  21. COVID-19 VACCINE [Concomitant]
     Indication: COVID-19 immunisation
     Route: 065
  22. CITRATE [Concomitant]
     Active Substance: CITRIC ACID MONOHYDRATE
     Route: 065
  23. CLOPIDOGREL [Concomitant]
     Active Substance: CLOPIDOGREL BISULFATE
     Indication: Cerebrovascular accident
     Route: 065
  24. DAPAGLIFLOZIN [Concomitant]
     Active Substance: DAPAGLIFLOZIN
     Indication: Renal impairment
     Dosage: UNK, QD
     Route: 065
  25. MAGNESIUM CITRATE [Concomitant]
     Active Substance: MAGNESIUM CITRATE
     Indication: Renal impairment
     Dosage: 600 MILLIGRAM, QD
     Route: 065
  26. AMLODIPINE [Concomitant]
     Active Substance: AMLODIPINE BESYLATE
     Dosage: 5 MILLIGRAM, QD
     Route: 065

REACTIONS (33)
  - Syncope [Recovered/Resolved]
  - Cerebrovascular accident [Recovered/Resolved]
  - Neuralgia [Unknown]
  - Renal impairment [Unknown]
  - COVID-19 [Recovered/Resolved with Sequelae]
  - Chills [Recovered/Resolved]
  - Pyrexia [Recovered/Resolved]
  - Headache [Recovering/Resolving]
  - Erythema [Recovered/Resolved]
  - Fall [Recovered/Resolved]
  - Anxiety [Unknown]
  - Weight increased [Unknown]
  - Mass [Unknown]
  - Neurofibromatosis [Not Recovered/Not Resolved]
  - Depression [Unknown]
  - Influenza [Recovered/Resolved]
  - Drug specific antibody present [Unknown]
  - Sensory loss [Unknown]
  - Cough [Recovered/Resolved]
  - Diarrhoea [Unknown]
  - Hypersensitivity [Unknown]
  - Nausea [Recovered/Resolved]
  - Influenza like illness [Recovered/Resolved]
  - Tremor [Unknown]
  - Vomiting [Recovered/Resolved]
  - Pain [Not Recovered/Not Resolved]
  - Peripheral swelling [Recovered/Resolved]
  - Fatigue [Unknown]
  - Drug hypersensitivity [Not Recovered/Not Resolved]
  - Infusion related reaction [Unknown]
  - Inappropriate schedule of product administration [Unknown]
  - Malaise [Unknown]
  - Application site reaction [Unknown]

NARRATIVE: CASE EVENT DATE: 20210420
